FAERS Safety Report 4375121-2 (Version None)
Quarter: 2004Q2

REPORT INFORMATION
  Report Type: 
  Country: None (occurrence: None)
  Receive Date: 20040609
  Receipt Date: 20040601
  Transmission Date: 20050107
  Serious: Yes (Hospitalization)
  Sender: FDA-Public Use
  Company Number: AU-MERCK-0406AUS00010

PATIENT
  Age: 45 Year
  Sex: Male

DRUGS (14)
  1. ASPIRIN [Concomitant]
     Route: 065
  2. ATORVASTATIN CALCIUM [Concomitant]
     Route: 065
  3. CHOLESTYRAMINE RESIN [Concomitant]
     Route: 065
  4. CLOPIDOGREL BISULFATE [Concomitant]
     Route: 065
  5. ZETIA [Suspect]
     Route: 048
     Dates: start: 20040415, end: 20040522
  6. ZETIA [Suspect]
     Route: 048
     Dates: start: 20040523, end: 20040528
  7. ZETIA [Suspect]
     Route: 048
     Dates: start: 20040529
  8. FOLIC ACID [Concomitant]
     Route: 065
  9. INDAPAMIDE [Concomitant]
     Route: 065
  10. NITROGLYCERIN [Concomitant]
     Route: 065
  11. PERHEXILINE MALEATE [Concomitant]
     Route: 065
  12. RAMIPRIL [Concomitant]
     Route: 065
  13. SOTALOL HYDROCHLORIDE [Concomitant]
     Route: 065
  14. UBIDECARENONE [Concomitant]
     Route: 065

REACTIONS (4)
  - ATRIAL FIBRILLATION [None]
  - MEDICATION ERROR [None]
  - MYOCARDIAL INFARCTION [None]
  - OVERDOSE [None]
